FAERS Safety Report 22088765 (Version 1)
Quarter: 2023Q1

REPORT INFORMATION
  Report Type: Spontaneous
  Country: US (occurrence: US)
  Receive Date: 20230313
  Receipt Date: 20230313
  Transmission Date: 20230417
  Serious: No
  Sender: FDA-Public Use
  Company Number: US-BoehringerIngelheim-2023-BI-223784

PATIENT
  Sex: Female

DRUGS (1)
  1. SPIRIVA RESPIMAT [Suspect]
     Active Substance: TIOTROPIUM BROMIDE
     Indication: Chest discomfort
     Dosage: 2 PUFFS PER DAY PLUS 2 MORE AT NIGHT AS NEEDED

REACTIONS (2)
  - Product prescribing issue [Not Recovered/Not Resolved]
  - Off label use [Not Recovered/Not Resolved]
